FAERS Safety Report 19408388 (Version 4)
Quarter: 2021Q3

REPORT INFORMATION
  Report Type: Spontaneous
  Country: ES (occurrence: ES)
  Receive Date: 20210612
  Receipt Date: 20210910
  Transmission Date: 20211014
  Serious: Yes (Death, Hospitalization)
  Sender: FDA-Public Use
  Company Number: ES-ROCHE-2847301

PATIENT
  Age: 60 Year
  Sex: Female
  Weight: 58 kg

DRUGS (12)
  1. BACLOFENO [Concomitant]
     Active Substance: BACLOFEN
  2. PANTOPRAZOL [Concomitant]
     Active Substance: PANTOPRAZOLE SODIUM
  3. LEXATIN (SPAIN) [Concomitant]
  4. ESCITALOPRAM [Concomitant]
     Active Substance: ESCITALOPRAM OXALATE
  5. TERIPARATIDA [Concomitant]
     Dosage: 20 MICROG/80 MICROL 1?0?0
  6. MACROGOL [Concomitant]
     Active Substance: POLYETHYLENE GLYCOLS
     Dosage: 13.8G S/P
  7. TRAMADOL. [Concomitant]
     Active Substance: TRAMADOL
  8. FERBISOL [Concomitant]
  9. HIDROFEROL [Concomitant]
     Active Substance: CALCIFEDIOL
  10. ACFOL [Concomitant]
     Active Substance: FOLIC ACID
  11. OCREVUS [Suspect]
     Active Substance: OCRELIZUMAB
     Indication: PRIMARY PROGRESSIVE MULTIPLE SCLEROSIS
     Route: 042
     Dates: start: 20180717, end: 20190129
  12. CALCIO CARBONATO [Concomitant]

REACTIONS (3)
  - Escherichia urinary tract infection [Not Recovered/Not Resolved]
  - Pneumonia pneumococcal [Unknown]
  - COVID-19 pneumonia [Fatal]

NARRATIVE: CASE EVENT DATE: 20190712
